FAERS Safety Report 8531321-9 (Version None)
Quarter: 2012Q3

REPORT INFORMATION
  Report Type: 
  Country: None (occurrence: None)
  Receive Date: 20120710
  Receipt Date: 20120627
  Transmission Date: 20120928
  Serious: Yes (Other)
  Sender: FDA-Public Use
  Company Number: 2011MA002983

PATIENT
  Sex: Male

DRUGS (1)
  1. METOCLOPRAMIDE [Suspect]
     Indication: PRODUCT USED FOR UNKNOWN INDICATION
     Dosage: 0.8 ML, TID; PO
     Route: 048
     Dates: start: 20070901, end: 20090601

REACTIONS (8)
  - EXTRAPYRAMIDAL DISORDER [None]
  - DYSKINESIA [None]
  - EMOTIONAL DISORDER [None]
  - TARDIVE DYSKINESIA [None]
  - AKATHISIA [None]
  - DYSTONIA [None]
  - TREMOR [None]
  - ECONOMIC PROBLEM [None]
